FAERS Safety Report 6085284-9 (Version None)
Quarter: 2009Q1

REPORT INFORMATION
  Report Type: 
  Country: None (occurrence: None)
  Receive Date: 20090220
  Receipt Date: 20090217
  Transmission Date: 20090719
  Serious: Yes (Other)
  Sender: FDA-Public Use
  Company Number: GB-ASTRAZENECA-2008GB01642

PATIENT
  Age: 63 Year
  Sex: Male

DRUGS (1)
  1. GOSERELIN [Suspect]
     Indication: PROSTATE CANCER
     Route: 058
     Dates: start: 20080201

REACTIONS (1)
  - ATAXIA [None]
